FAERS Safety Report 21740413 (Version 1)
Quarter: 2022Q4

REPORT INFORMATION
  Report Type: Spontaneous
  Country: GB (occurrence: GB)
  Receive Date: 20221216
  Receipt Date: 20221216
  Transmission Date: 20230113
  Serious: Yes (Other)
  Sender: FDA-Public Use
  Company Number: GB-MHRA-MED-202212022232092850-JYBSH

PATIENT
  Age: 38 Year
  Sex: Female

DRUGS (4)
  1. DULOXETINE HYDROCHLORIDE [Suspect]
     Active Substance: DULOXETINE HYDROCHLORIDE
     Indication: Fibromyalgia
     Dosage: 60 MG, UNKNOWN
     Route: 065
     Dates: start: 20220901, end: 20221108
  2. DULOXETINE HYDROCHLORIDE [Suspect]
     Active Substance: DULOXETINE HYDROCHLORIDE
     Dosage: 30 MG, UNKNOWN
     Route: 065
     Dates: start: 20220901, end: 20221108
  3. SOLPADEINE [CAFFEINE;CODEINE PHOSPHATE;PARACE [Concomitant]
     Indication: Pain
     Dosage: UNK
  4. SOLPADEINE [CAFFEINE;CODEINE PHOSPHATE;PARACE [Concomitant]
     Indication: Fibromyalgia

REACTIONS (2)
  - Depression [Recovered/Resolved]
  - Headache [Recovered/Resolved]
